FAERS Safety Report 7338353-7 (Version None)
Quarter: 2011Q1

REPORT INFORMATION
  Report Type: 
  Country: None (occurrence: None)
  Receive Date: 20110308
  Receipt Date: 20110303
  Transmission Date: 20110831
  Serious: Yes (Life-Threatening)
  Sender: FDA-Public Use
  Company Number: FR-BRISTOL-MYERS SQUIBB COMPANY-15588858

PATIENT
  Age: 47 Year
  Sex: Male

DRUGS (7)
  1. CYAMEMAZINE [Suspect]
  2. LEXOMIL [Suspect]
     Dosage: LEXOMIL ROCHE
     Dates: end: 20110103
  3. ABILIFY [Suspect]
     Dates: end: 20110103
  4. CLOZAPINE [Suspect]
     Dates: end: 20110103
  5. VALIUM [Suspect]
     Dates: end: 20110103
  6. DEPAKOTE [Suspect]
     Dates: end: 20110103
  7. ZYPREXA [Suspect]
     Dates: end: 20110103

REACTIONS (5)
  - COMA [None]
  - PANCYTOPENIA [None]
  - POLYURIA [None]
  - SHOCK [None]
  - INTENTIONAL OVERDOSE [None]
